FAERS Safety Report 5679603-2 (Version None)
Quarter: 2008Q1

REPORT INFORMATION
  Report Type: 
  Country: None (occurrence: None)
  Receive Date: 20080325
  Receipt Date: 20080319
  Transmission Date: 20080703
  Serious: Yes (Death)
  Sender: FDA-Public Use
  Company Number: CA-ALLERGAN-0801016US

PATIENT
  Sex: Female
  Weight: 100 kg

DRUGS (6)
  1. BOTOX [Suspect]
     Indication: MUSCLE SPASTICITY
     Dosage: 500 UNITS, SINGLE
     Route: 030
     Dates: start: 20071026, end: 20071026
  2. CELEBREX [Concomitant]
     Dosage: 200 MG, QD
  3. BROMAZEPAM [Concomitant]
     Dosage: 12 MG, QD
  4. SOFLAX [Concomitant]
     Dosage: 100 MG, QD
  5. OMEPRAZOLE [Concomitant]
     Dosage: 20 MG, QD
  6. TRAZODONE HCL [Concomitant]
     Dosage: 25-50 MG, QD

REACTIONS (2)
  - DYSPHAGIA [None]
  - PNEUMONIA ASPIRATION [None]
